FAERS Safety Report 5070068-0 (Version None)
Quarter: 2006Q3

REPORT INFORMATION
  Report Type: 
  Country: None (occurrence: None)
  Receive Date: 20060731
  Receipt Date: 20060720
  Transmission Date: 20061208
  Serious: Yes (Other)
  Sender: FDA-Public Use
  Company Number: 2006090321

PATIENT
  Age: 65 Year
  Sex: Male

DRUGS (10)
  1. TAHOR (ATORVASTATIN) [Suspect]
     Indication: DRUG USE FOR UNKNOWN INDICATION
     Dosage: 10 MG (10 MG 1 IN 1 D)
     Dates: end: 20060719
  2. OMEPRAZOLE [Suspect]
     Indication: DRUG USE FOR UNKNOWN INDICATION
     Dates: end: 20060720
  3. NOCTRAN 10 (ACEPROMAZINE, ACEPROMETAZINE, CLORAZEPATE DIPOTASSIUM) [Suspect]
     Indication: DRUG USE FOR UNKNOWN INDICATION
     Dates: end: 20060720
  4. PIROXICAM [Suspect]
     Indication: DRUG USE FOR UNKNOWN INDICATION
     Dates: end: 20060720
  5. INSUPIN ASPART (INSULIN ASPART) [Concomitant]
  6. ENALAPRIL MALEATE [Concomitant]
  7. INDAPAMIDE [Concomitant]
  8. FUROSEMIDE (FUORSEMIDE) [Concomitant]
  9. APOREX (DEXTROPROPOXYPHENE HYDROCHLORIDE, PARACETAMOL) [Concomitant]
  10. ALL OTHER THERAPEUTIC PRODUCTS (ALL OTHER THERAPEUTIC PRODUCTS) [Concomitant]

REACTIONS (5)
  - CREATINE PHOSPHOKINASE DECREASED [None]
  - GAMMA-GLUTAMYLTRANSFERASE INCREASED [None]
  - MYALGIA [None]
  - PANCYTOPENIA [None]
  - RENAL FAILURE [None]
